FAERS Safety Report 6155239-4 (Version None)
Quarter: 2009Q2

REPORT INFORMATION
  Report Type: 
  Country: None (occurrence: None)
  Receive Date: 20090415
  Receipt Date: 20090406
  Transmission Date: 20091009
  Serious: Yes (Disabling, Other)
  Sender: FDA-Public Use
  Company Number: PHHY2009GB12964

PATIENT
  Age: 74 Year
  Sex: Female
  Weight: 83.91 kg

DRUGS (5)
  1. DARIFENACIN [Suspect]
     Indication: PSYCHOMOTOR HYPERACTIVITY
     Dosage: 7.5MG
     Route: 048
     Dates: start: 20090119, end: 20090130
  2. BENDROFLUMETHIAZIDE [Concomitant]
     Indication: OEDEMA PERIPHERAL
     Dosage: 2.5MG
     Route: 048
  3. ACETAMINOPHEN W/ CODEINE [Concomitant]
     Indication: BACK PAIN
     Dosage: 2 DF
     Route: 048
     Dates: start: 19990101
  4. LACTULOSE [Concomitant]
     Indication: CONSTIPATION
     Dosage: 15ML
     Route: 048
     Dates: start: 19990101
  5. PANTOPRAZOLE SODIUM [Concomitant]
     Indication: GASTROOESOPHAGEAL REFLUX DISEASE
     Dosage: 20MG
     Route: 048
     Dates: start: 20040101

REACTIONS (2)
  - COUGH [None]
  - LOWER RESPIRATORY TRACT INFECTION [None]
